FAERS Safety Report 21010835 (Version 1)
Quarter: 2022Q2

REPORT INFORMATION
  Report Type: Spontaneous
  Country: US (occurrence: None)
  Receive Date: 20220624
  Receipt Date: 20220624
  Transmission Date: 20220720
  Serious: No
  Sender: FDA-Public Use
  Company Number: None

PATIENT
  Sex: Female

DRUGS (1)
  1. LENALIDOMIDE [Suspect]
     Active Substance: LENALIDOMIDE
     Indication: Plasma cell myeloma
     Dosage: 10MG DAILY ORAL
     Route: 048
     Dates: start: 20220602

REACTIONS (4)
  - Product substitution issue [None]
  - Paraesthesia [None]
  - Paraesthesia [None]
  - Reaction to excipient [None]
